FAERS Safety Report 12154290 (Version 1)
Quarter: 2016Q1

REPORT INFORMATION
  Report Type: Spontaneous
  Country: US (occurrence: None)
  Receive Date: 20160304
  Receipt Date: 20160304
  Transmission Date: 20160526
  Serious: No
  Sender: FDA-Public Use
  Company Number: None

PATIENT
  Age: 58 Year
  Sex: Female

DRUGS (8)
  1. NASACORT [Concomitant]
     Active Substance: TRIAMCINOLONE ACETONIDE
  2. PROMETHAZINE [Concomitant]
     Active Substance: PROMETHAZINE\PROMETHAZINE HYDROCHLORIDE
  3. DICYCLOMINE [Concomitant]
     Active Substance: DICYCLOMINE HYDROCHLORIDE
  4. LEFLUNOMIDE. [Concomitant]
     Active Substance: LEFLUNOMIDE
  5. AMLODIPINE [Concomitant]
     Active Substance: AMLODIPINE BESYLATE
  6. ENBREL [Suspect]
     Active Substance: ETANERCEPT
     Indication: RHEUMATOID ARTHRITIS
     Route: 058
  7. LISINOPRIL. [Concomitant]
     Active Substance: LISINOPRIL
  8. HYDROCO [Concomitant]

REACTIONS (10)
  - Musculoskeletal stiffness [None]
  - Headache [None]
  - Arthropathy [None]
  - Nausea [None]
  - Fatigue [None]
  - Peripheral swelling [None]
  - Abdominal distension [None]
  - Infection [None]
  - Injection site erythema [None]
  - Drug dose omission [None]

NARRATIVE: CASE EVENT DATE: 2016
